FAERS Safety Report 24431642 (Version 2)
Quarter: 2024Q4

REPORT INFORMATION
  Report Type: Report from Study
  Country: US (occurrence: US)
  Receive Date: 20241014
  Receipt Date: 20241022
  Transmission Date: 20250115
  Serious: Yes (Hospitalization)
  Sender: ABBVIE
  Company Number: US-ABBVIE-5959370

PATIENT
  Age: 68 Year
  Sex: Female

DRUGS (1)
  1. SKYRIZI [Suspect]
     Active Substance: RISANKIZUMAB-RZAA
     Indication: Crohn^s disease
     Route: 058
     Dates: start: 20231101

REACTIONS (5)
  - Intestinal obstruction [Recovering/Resolving]
  - Hypertension [Unknown]
  - Blood potassium decreased [Unknown]
  - Headache [Unknown]
  - Depression [Unknown]

NARRATIVE: CASE EVENT DATE: 20241001
